FAERS Safety Report 20767670 (Version 2)
Quarter: 2022Q2

REPORT INFORMATION
  Report Type: Spontaneous
  Country: US (occurrence: US)
  Receive Date: 20220429
  Receipt Date: 20220513
  Transmission Date: 20220721
  Serious: No
  Sender: FDA-Public Use
  Company Number: US-SA-SAC20220203001079

PATIENT
  Age: 79 Year
  Sex: Male

DRUGS (5)
  1. DUPILUMAB [Suspect]
     Active Substance: DUPILUMAB
     Indication: Dermatitis atopic
     Dosage: 300 MG, QOW
     Route: 058
     Dates: start: 20211217
  2. TAMSULOSIN [Concomitant]
     Active Substance: TAMSULOSIN
     Indication: Prostatic disorder
     Dosage: 1 DF
     Dates: start: 2012
  3. ELIQUIS [Concomitant]
     Active Substance: APIXABAN
     Indication: Transient ischaemic attack
     Dosage: 2 DF
  4. FINASTERIDE [Concomitant]
     Active Substance: FINASTERIDE
     Dosage: 1 DF
     Dates: start: 2012
  5. DIVALPROEX SODIUM [Concomitant]
     Active Substance: DIVALPROEX SODIUM
     Indication: Seizure
     Dosage: 2 DF

REACTIONS (9)
  - Eczema [Recovered/Resolved]
  - Disease recurrence [Recovered/Resolved]
  - Nausea [Not Recovered/Not Resolved]
  - Tic [Not Recovered/Not Resolved]
  - Asthenia [Recovering/Resolving]
  - Gait inability [Recovering/Resolving]
  - Fatigue [Recovered/Resolved]
  - Product use issue [Unknown]
  - Rash [Unknown]

NARRATIVE: CASE EVENT DATE: 20210201
